FAERS Safety Report 15068700 (Version 6)
Quarter: 2019Q1

REPORT INFORMATION
  Report Type: Spontaneous
  Country: JP (occurrence: JP)
  Receive Date: 20180626
  Receipt Date: 20190118
  Transmission Date: 20190417
  Serious: Yes (Hospitalization, Other)
  Sender: FDA-Public Use
  Company Number: JP-009507513-1806JPN002339J

PATIENT
  Age: 74 Year
  Sex: Male
  Weight: 61 kg

DRUGS (4)
  1. KEYTRUDA [Suspect]
     Active Substance: PEMBROLIZUMAB
     Indication: LUNG ADENOCARCINOMA STAGE IV
     Dosage: 200 MG, Q3W
     Route: 041
     Dates: start: 20180314, end: 20180606
  2. REZALTAS [Concomitant]
     Active Substance: AZELNIDIPINE\OLMESARTAN MEDOXOMIL
     Dosage: 1 DF, QD
     Route: 048
     Dates: start: 20141210
  3. ATORVASTATIN [Concomitant]
     Active Substance: ATORVASTATIN
     Dosage: 10 MG, QD
     Route: 048
     Dates: start: 20150617
  4. CLOPIDOGREL [Concomitant]
     Active Substance: CLOPIDOGREL BISULFATE
     Dosage: 75 MG, QD
     Route: 048
     Dates: start: 20170517

REACTIONS (3)
  - Colitis ulcerative [Recovering/Resolving]
  - Hypopituitarism [Recovering/Resolving]
  - Adrenal insufficiency [Recovering/Resolving]

NARRATIVE: CASE EVENT DATE: 20180606
